FAERS Safety Report 10920804 (Version 4)
Quarter: 2015Q2

REPORT INFORMATION
  Report Type: Report from Study
  Country: UA (occurrence: UA)
  Receive Date: 20150317
  Receipt Date: 20150624
  Transmission Date: 20150821
  Serious: Yes (Life-Threatening, Hospitalization, Disabling, Other)
  Sender: FDA-Public Use
  Company Number: UA-SA-2015SA030217

PATIENT
  Age: 76 Year
  Sex: Female
  Weight: 74 kg

DRUGS (14)
  1. VALSARTAN. [Concomitant]
     Active Substance: VALSARTAN
  2. LIVALO [Concomitant]
     Active Substance: PITAVASTATIN CALCIUM
  3. PREDIZIN [Concomitant]
  4. ANALGIN [Concomitant]
     Active Substance: METAMIZOLE SODIUM
  5. CITICOLINE [Concomitant]
     Active Substance: CITICOLINE
  6. AMLODIPINE [Concomitant]
     Active Substance: AMLODIPINE BESYLATE
  7. INSULIN GLARGINE [Suspect]
     Active Substance: INSULIN GLARGINE
     Indication: TYPE 2 DIABETES MELLITUS
     Route: 058
     Dates: start: 20140626, end: 20141119
  8. CORYOL [Concomitant]
     Active Substance: CARVEDILOL
  9. ISOSORBIDE DINITRATE. [Concomitant]
     Active Substance: ISOSORBIDE DINITRATE
  10. ENOXAPARIN [Concomitant]
     Active Substance: ENOXAPARIN
  11. HUMALOG [Suspect]
     Active Substance: INSULIN LISPRO
     Indication: TYPE 2 DIABETES MELLITUS
     Dosage: DOSE: PRE BREAKFAST 7 UI, PRE-LUNCH 10 IU, PRE-DINNER 8 IU
     Route: 058
     Dates: start: 20140626, end: 20141120
  12. ACTOVEGIN [Concomitant]
     Active Substance: UNSPECIFIED INGREDIENT
  13. TRIZIPIN [Concomitant]
  14. HUMALOG [Suspect]
     Active Substance: INSULIN LISPRO
     Indication: TYPE 2 DIABETES MELLITUS
     Dosage: DOSE: PRE BREAKFAST 9 UI, PRE-LUNCH 10 IU, PRE-DINNER 9 IU
     Route: 058

REACTIONS (2)
  - Angina unstable [Recovered/Resolved]
  - Hypoglycaemia [Recovered/Resolved]

NARRATIVE: CASE EVENT DATE: 20141116
